FAERS Safety Report 8601463-8 (Version None)
Quarter: 2012Q3

REPORT INFORMATION
  Report Type: 
  Country: None (occurrence: None)
  Receive Date: 20120817
  Receipt Date: 20111018
  Transmission Date: 20120928
  Serious: Yes (Hospitalization)
  Sender: FDA-Public Use
  Company Number: US-BRISTOL-MYERS SQUIBB COMPANY-15988744

PATIENT
  Age: 77 Year
  Sex: Male

DRUGS (4)
  1. SPRYCEL [Suspect]
     Indication: CHRONIC MYELOID LEUKAEMIA
     Route: 048
     Dates: start: 20070101
  2. LASIX [Concomitant]
  3. FOLIC ACID [Concomitant]
  4. POTASSIUM [Concomitant]

REACTIONS (3)
  - PERICARDIAL EFFUSION [None]
  - FLUID RETENTION [None]
  - PLEURAL EFFUSION [None]
